FAERS Safety Report 7736471-2 (Version None)
Quarter: 2011Q3

REPORT INFORMATION
  Report Type: 
  Country: None (occurrence: None)
  Receive Date: 20110902
  Receipt Date: 20100830
  Transmission Date: 20111222
  Serious: Yes (Hospitalization)
  Sender: FDA-Public Use
  Company Number: DAV-GLY-11-01

PATIENT
  Age: 76 Year
  Sex: Female

DRUGS (1)
  1. GLYBURIDE [Suspect]

REACTIONS (10)
  - ASTHENIA [None]
  - PRESYNCOPE [None]
  - DRUG PRESCRIBING ERROR [None]
  - BUNDLE BRANCH BLOCK LEFT [None]
  - HYPOGLYCAEMIA [None]
  - BLOOD POTASSIUM INCREASED [None]
  - IRRITABILITY [None]
  - WRONG DRUG ADMINISTERED [None]
  - MEMORY IMPAIRMENT [None]
  - MYOCARDIAL INFARCTION [None]
